FAERS Safety Report 8032737-X (Version None)
Quarter: 2012Q1

REPORT INFORMATION
  Report Type: 
  Country: None (occurrence: None)
  Receive Date: 20120110
  Receipt Date: 20120105
  Transmission Date: 20120608
  Serious: Yes (Life-Threatening)
  Sender: FDA-Public Use
  Company Number: US-CELGENEUS-163-21880-12010557

PATIENT
  Age: 67 Year
  Sex: Male

DRUGS (1)
  1. REVLIMID [Suspect]
     Dosage: 5 MILLIGRAM
     Route: 048
     Dates: start: 20101221, end: 20101225

REACTIONS (1)
  - TUMOUR FLARE [None]
